FAERS Safety Report 21808290 (Version 2)
Quarter: 2023Q1

REPORT INFORMATION
  Report Type: Spontaneous
  Country: US (occurrence: US)
  Receive Date: 20230103
  Receipt Date: 20230105
  Transmission Date: 20230417
  Serious: No
  Sender: FDA-Public Use
  Company Number: US-SANOFI-01424380

PATIENT
  Sex: Female

DRUGS (1)
  1. DUPIXENT [Suspect]
     Active Substance: DUPILUMAB
     Dosage: 300 MG
     Dates: start: 202206

REACTIONS (4)
  - Injection site reaction [Unknown]
  - Injection site pruritus [Unknown]
  - Injection site erythema [Unknown]
  - Injection site discolouration [Unknown]

NARRATIVE: CASE EVENT DATE: 20221201
